FAERS Safety Report 10609398 (Version 3)
Quarter: 2015Q1

REPORT INFORMATION
  Report Type: Spontaneous
  Country: JP (occurrence: JP)
  Receive Date: 20141126
  Receipt Date: 20150309
  Transmission Date: 20150720
  Serious: Yes (Life-Threatening, Hospitalization, Other)
  Sender: FDA-Public Use
  Company Number: JP-OTSUKA-JP-2014-18973

PATIENT

DRUGS (7)
  1. SAMSCA [Suspect]
     Active Substance: TOLVAPTAN
     Indication: HEPATIC HYDROTHORAX
     Dosage: 3.75 MG MILLIGRAM(S), DAILY DOSE
     Route: 048
     Dates: start: 20140905, end: 20141006
  2. SAMSCA [Suspect]
     Active Substance: TOLVAPTAN
     Dosage: 3.75 MG MILLIGRAM(S), DAILY DOSE
     Route: 048
     Dates: start: 20141114
  3. LASIX M [Suspect]
     Active Substance: FUROSEMIDE
     Indication: PRODUCT USED FOR UNKNOWN INDICATION
     Dosage: 40 MG MILLIGRAM(S), DAILY DOSE
     Route: 048
     Dates: start: 20141004, end: 20141031
  4. THYRADIN S [Concomitant]
     Active Substance: LEVOTHYROXINE SODIUM
     Indication: PRODUCT USED FOR UNKNOWN INDICATION
     Dosage: 25 MCG, DAILY DOSE
     Route: 048
     Dates: start: 20080129, end: 20141104
  5. SAMSCA [Suspect]
     Active Substance: TOLVAPTAN
     Dosage: 7.5 MG MILLIGRAM(S), DAILY DOSE
     Route: 048
     Dates: start: 20141007, end: 20141104
  6. TAKEPRON [Concomitant]
     Active Substance: LANSOPRAZOLE
     Indication: PRODUCT USED FOR UNKNOWN INDICATION
     Dosage: 30 MG MILLIGRAM(S), DAILY DOSE
     Route: 048
     Dates: start: 20030429, end: 20141104
  7. LASIX M [Suspect]
     Active Substance: FUROSEMIDE
     Dosage: 20 MG MILLIGRAM(S), DAILY DOSE
     Route: 048
     Dates: start: 20141101, end: 20141104

REACTIONS (2)
  - Circulatory collapse [Recovered/Resolved]
  - Hepatic encephalopathy [Unknown]

NARRATIVE: CASE EVENT DATE: 20141027
